FAERS Safety Report 25453176 (Version 1)
Quarter: 2025Q2

REPORT INFORMATION
  Report Type: Spontaneous
  Country: CN (occurrence: CN)
  Receive Date: 20250618
  Receipt Date: 20250618
  Transmission Date: 20250717
  Serious: Yes (Death, Hospitalization, Other)
  Sender: ASTELLAS
  Company Number: CN-ASTELLAS-2025-AER-032845

PATIENT
  Age: 10 Year
  Sex: Female

DRUGS (5)
  1. TACROLIMUS [Suspect]
     Active Substance: TACROLIMUS
     Indication: Glomerulonephritis rapidly progressive
     Route: 065
  2. METHYLPREDNISOLONE [Suspect]
     Active Substance: METHYLPREDNISOLONE
     Indication: Glomerulonephritis rapidly progressive
     Route: 065
  3. ALBUMIN HUMAN [Concomitant]
     Active Substance: ALBUMIN HUMAN
     Indication: Symptomatic treatment
     Route: 065
  4. mucopolysaccharide polysulfate [Concomitant]
     Indication: Ecchymosis
     Route: 061
  5. PIPERACILLIN AND TAZOBACTAM [Concomitant]
     Active Substance: PIPERACILLIN SODIUM\TAZOBACTAM SODIUM
     Indication: Prophylaxis
     Route: 042

REACTIONS (5)
  - Pneumonia [Fatal]
  - Respiratory failure [Fatal]
  - COVID-19 [Fatal]
  - Cutaneous mucormycosis [Recovered/Resolved]
  - Off label use [Unknown]
